FAERS Safety Report 8136687-X (Version None)
Quarter: 2012Q1

REPORT INFORMATION
  Report Type: 
  Country: None (occurrence: None)
  Receive Date: 20120209
  Receipt Date: 20120201
  Transmission Date: 20120608
  Serious: Yes (Other)
  Sender: FDA-Public Use
  Company Number: 2012SP006698

PATIENT
  Sex: Female

DRUGS (1)
  1. ETONOGESTREL (IMPLANT TYPE UNKNOWN) (ETONOGESTREL /01502301/) [Suspect]
     Indication: CONTRACEPTION

REACTIONS (1)
  - EPILEPSY [None]
